FAERS Safety Report 15654527 (Version 1)
Quarter: 2018Q4

REPORT INFORMATION
  Report Type: Spontaneous
  Country: FR (occurrence: FR)
  Receive Date: 20181126
  Receipt Date: 20181126
  Transmission Date: 20190205
  Serious: Yes (Hospitalization)
  Sender: FDA-Public Use
  Company Number: FR-TEVA-2018-FR-978405

PATIENT
  Age: 29 Year
  Sex: Male

DRUGS (6)
  1. PARACETAMOL [Suspect]
     Active Substance: ACETAMINOPHEN
     Indication: PYREXIA
     Route: 048
     Dates: start: 20181008, end: 20181013
  2. ACIDE ACETYLSALICYLIQUE [Suspect]
     Active Substance: ASPIRIN
     Indication: PYREXIA
     Route: 048
     Dates: start: 20181010, end: 20181013
  3. IMETH 10 MG, COMPRIM? S?CABLE [Suspect]
     Active Substance: METHOTREXATE
     Indication: RHEUMATOID ARTHRITIS
     Route: 048
     Dates: start: 201303
  4. AMOXICILLINE [Suspect]
     Active Substance: AMOXICILLIN
     Indication: PYREXIA
     Route: 048
     Dates: start: 20181010, end: 20181013
  5. ENBREL [Suspect]
     Active Substance: ETANERCEPT
     Indication: RHEUMATOID ARTHRITIS
     Route: 058
     Dates: start: 201303
  6. ACIDE CLAVULANIQUE [Suspect]
     Active Substance: CLAVULANIC ACID
     Indication: PYREXIA
     Route: 048
     Dates: start: 20181010, end: 20181013

REACTIONS (1)
  - Hepatocellular injury [Recovering/Resolving]

NARRATIVE: CASE EVENT DATE: 20181013
